FAERS Safety Report 8155609-9 (Version None)
Quarter: 2012Q1

REPORT INFORMATION
  Report Type: 
  Country: None (occurrence: None)
  Receive Date: 20120222
  Receipt Date: 20120217
  Transmission Date: 20120608
  Serious: No
  Sender: FDA-Public Use
  Company Number: US-PFIZER INC-2012043479

PATIENT
  Sex: Male
  Weight: 72.1 kg

DRUGS (2)
  1. SUTENT [Suspect]
     Indication: RENAL CELL CARCINOMA
     Dosage: 37.5 MG, 1X/DAY
     Route: 048
     Dates: start: 20120121
  2. ATENOLOL [Concomitant]
     Indication: HYPERTENSION
     Dosage: 50 MG, 2X/DAY

REACTIONS (7)
  - STOMATITIS [None]
  - ORAL PAIN [None]
  - DYSPHAGIA [None]
  - ASTHENIA [None]
  - DIARRHOEA [None]
  - DRY MOUTH [None]
  - DEHYDRATION [None]
